FAERS Safety Report 19453404 (Version 1)
Quarter: 2021Q2

REPORT INFORMATION
  Report Type: Spontaneous
  Country: US (occurrence: US)
  Receive Date: 20210623
  Receipt Date: 20210623
  Transmission Date: 20210717
  Serious: No
  Sender: FDA-Public Use
  Company Number: US-PFIZER INC-2021355733

PATIENT
  Sex: Female

DRUGS (1)
  1. IBRANCE [Suspect]
     Active Substance: PALBOCICLIB
     Indication: BREAST CANCER FEMALE
     Dosage: 100 MG, DAILY DAY 1 TO 21, FOLLOWED BY 7 DAY REST, REPEATED EVERY 28 DAYS
     Route: 048
     Dates: start: 202103

REACTIONS (1)
  - Headache [Unknown]
